FAERS Safety Report 26179572 (Version 1)
Quarter: 2025Q4

REPORT INFORMATION
  Report Type: Spontaneous
  Country: MX (occurrence: MX)
  Receive Date: 20251219
  Receipt Date: 20251219
  Transmission Date: 20260118
  Serious: Yes (Hospitalization)
  Sender: SANDOZ
  Company Number: MX-002147023-NVSC2025MX190393

PATIENT
  Age: 83 Year
  Sex: Male

DRUGS (3)
  1. EXELON [Suspect]
     Active Substance: RIVASTIGMINE TARTRATE
     Dosage: UNK (27 MILLIGRAM)
     Route: 062
  2. EXELON [Suspect]
     Active Substance: RIVASTIGMINE TARTRATE
     Dosage: 1.5 DOSAGE FORM, QD (ONE AND A HALF PATCH)
     Route: 062
     Dates: start: 2025
  3. EXELON [Suspect]
     Active Substance: RIVASTIGMINE TARTRATE
     Indication: Product used for unknown indication
     Dosage: UNK (18 MILLIGRAM)
     Route: 062
     Dates: start: 20170101

REACTIONS (2)
  - Pneumonia [Recovering/Resolving]
  - Wrong technique in product usage process [Unknown]
